FAERS Safety Report 4964530-6 (Version None)
Quarter: 2006Q2

REPORT INFORMATION
  Report Type: 
  Country: None (occurrence: None)
  Receive Date: 20060406
  Receipt Date: 20060201
  Transmission Date: 20061013
  Serious: Yes (Hospitalization)
  Sender: FDA-Public Use
  Company Number: GB-GLAXOSMITHKLINE-B0408866A

PATIENT
  Age: 94 Year
  Sex: Female
  Weight: 69.1 kg

DRUGS (2)
  1. LAMICTAL [Suspect]
     Route: 048
  2. CLOBAZAM [Concomitant]
     Dosage: 10MG THREE TIMES PER DAY
     Route: 048

REACTIONS (1)
  - PNEUMONIA [None]
